FAERS Safety Report 6666899-3 (Version None)
Quarter: 2010Q1

REPORT INFORMATION
  Report Type: 
  Country: None (occurrence: None)
  Receive Date: 20100331
  Receipt Date: 20100319
  Transmission Date: 20100710
  Serious: Yes (Death, Congenital Anomaly)
  Sender: FDA-Public Use
  Company Number: 028-20484-09030088

PATIENT

DRUGS (1)
  1. INNOHEP [Suspect]
     Dosage: 1 IN 1 TRANSPLACENTAL
     Route: 064
     Dates: start: 20031130, end: 20040218

REACTIONS (6)
  - ABORTION INDUCED [None]
  - CYSTIC LYMPHANGIOMA [None]
  - CYTOGENETIC ABNORMALITY [None]
  - EXOMPHALOS [None]
  - MATERNAL DRUGS AFFECTING FOETUS [None]
  - MULTIPLE CONGENITAL ABNORMALITIES [None]
